FAERS Safety Report 13209411 (Version 1)
Quarter: 2017Q1

REPORT INFORMATION
  Report Type: Spontaneous
  Country: US (occurrence: US)
  Receive Date: 20170209
  Receipt Date: 20170209
  Transmission Date: 20170428
  Serious: No
  Sender: FDA-Public Use
  Company Number: US-ALLERGAN-1637501US

PATIENT
  Age: 43 Year
  Sex: Female

DRUGS (4)
  1. BOTOX COSMETIC [Suspect]
     Active Substance: ONABOTULINUMTOXINA
     Indication: SKIN WRINKLING
     Dosage: 55 UNITS, SINGLE
     Route: 030
     Dates: start: 20151218, end: 20151218
  2. BOTOX COSMETIC [Suspect]
     Active Substance: ONABOTULINUMTOXINA
     Indication: SKIN WRINKLING
     Dosage: 6 UNITS, SINGLE
     Route: 030
     Dates: start: 20151218, end: 20151218
  3. BOTOX COSMETIC [Suspect]
     Active Substance: ONABOTULINUMTOXINA
     Indication: JAW DISORDER
     Dosage: 4 UNITS, SINGLE
     Route: 030
     Dates: start: 20151218, end: 20151218
  4. BOTOX COSMETIC [Suspect]
     Active Substance: ONABOTULINUMTOXINA
     Indication: SKIN WRINKLING
     Dosage: 10 UNITS, SINGLE
     Route: 030
     Dates: start: 20151218, end: 20151218

REACTIONS (7)
  - Off label use [Unknown]
  - Dysphagia [Unknown]
  - Dysphonia [Unknown]
  - Dry mouth [Unknown]
  - Skin disorder [Unknown]
  - Product preparation error [Unknown]
  - Odynophagia [Unknown]

NARRATIVE: CASE EVENT DATE: 20151229
